FAERS Safety Report 18464800 (Version 1)
Quarter: 2020Q4

REPORT INFORMATION
  Report Type: Spontaneous
  Country: NL (occurrence: NL)
  Receive Date: 20201104
  Receipt Date: 20201104
  Transmission Date: 20210114
  Serious: Yes (Other)
  Sender: FDA-Public Use
  Company Number: NL-MEITHEAL PHARMACEUTICALS-2020MHL00074

PATIENT
  Age: 33 Year
  Sex: Female

DRUGS (5)
  1. BLEOMYCIN [Suspect]
     Active Substance: BLEOMYCIN SULFATE
     Route: 065
  2. ^ABVD^ [Concomitant]
     Route: 065
  3. ARMODAFINIL. [Concomitant]
     Active Substance: ARMODAFINIL
     Route: 065
  4. LURASIDONE [Concomitant]
     Active Substance: LURASIDONE
     Route: 065
  5. NALTREXONE [Concomitant]
     Active Substance: NALTREXONE
     Route: 065

REACTIONS (2)
  - Respiratory failure [Recovered/Resolved]
  - Toxicity to various agents [Recovered/Resolved]
